FAERS Safety Report 14759314 (Version 2)
Quarter: 2019Q1

REPORT INFORMATION
  Report Type: Spontaneous
  Country: US (occurrence: US)
  Receive Date: 20180413
  Receipt Date: 20190312
  Transmission Date: 20190417
  Serious: No
  Sender: FDA-Public Use
  Company Number: US-ASTRAZENECA-2018SE33955

PATIENT
  Age: 797 Month
  Sex: Female
  Weight: 147.4 kg

DRUGS (8)
  1. GABAPENTIN. [Concomitant]
     Active Substance: GABAPENTIN
  2. METFORMIN [Suspect]
     Active Substance: METFORMIN HYDROCHLORIDE
     Dosage: NON AZ
     Route: 065
  3. LYRICA [Concomitant]
     Active Substance: PREGABALIN
     Indication: NEUROPATHY PERIPHERAL
     Route: 048
  4. BYDUREON BCISE [Suspect]
     Active Substance: EXENATIDE
     Indication: TYPE 2 DIABETES MELLITUS
     Route: 058
     Dates: start: 201802
  5. GLIPIZIDE. [Concomitant]
     Active Substance: GLIPIZIDE
  6. VITAMIN B12 [Concomitant]
     Active Substance: CYANOCOBALAMIN
  7. FARXIGA [Suspect]
     Active Substance: DAPAGLIFLOZIN PROPANEDIOL
     Route: 048
  8. LEVOTHYROXINE. [Concomitant]
     Active Substance: LEVOTHYROXINE
     Indication: THYROID OPERATION
     Route: 048
     Dates: start: 199712

REACTIONS (27)
  - Rhinorrhoea [Unknown]
  - Blood creatinine increased [Unknown]
  - Dysgeusia [Unknown]
  - Weight increased [Unknown]
  - Vomiting [Unknown]
  - Hypophagia [Unknown]
  - Memory impairment [Unknown]
  - Neuropathy peripheral [Unknown]
  - Nausea [Unknown]
  - Nephropathy [Unknown]
  - Increased tendency to bruise [Unknown]
  - Pollakiuria [Unknown]
  - Dehydration [Unknown]
  - Renal impairment [Unknown]
  - Headache [Unknown]
  - Feeling abnormal [Unknown]
  - Glycosylated haemoglobin increased [Unknown]
  - Blood blister [Unknown]
  - Skin atrophy [Unknown]
  - Sneezing [Unknown]
  - Polyuria [Unknown]
  - Malaise [Unknown]
  - Mobility decreased [Unknown]
  - Arthritis [Unknown]
  - Retching [Unknown]
  - Decreased appetite [Unknown]
  - Injury [Unknown]

NARRATIVE: CASE EVENT DATE: 201809
